FAERS Safety Report 6043519-2 (Version None)
Quarter: 2009Q1

REPORT INFORMATION
  Report Type: 
  Country: None (occurrence: None)
  Receive Date: 20090114
  Receipt Date: 20090114
  Transmission Date: 20090719
  Serious: No
  Sender: FDA-Public Use
  Company Number: None

PATIENT
  Age: 31 Year
  Sex: Female
  Weight: 93.8946 kg

DRUGS (1)
  1. ZESTORETIC [Suspect]
     Indication: HYPERTENSION
     Dosage: 10-10.5 MG 1 TAB DAILY PO
     Route: 048
     Dates: start: 20081103, end: 20081207

REACTIONS (9)
  - DYSPHAGIA [None]
  - DYSPNOEA [None]
  - EATING DISORDER [None]
  - EYE DISORDER [None]
  - EYE PAIN [None]
  - EYE SWELLING [None]
  - LOCAL SWELLING [None]
  - SPEECH DISORDER [None]
  - SWELLING FACE [None]
